FAERS Safety Report 7511140-2 (Version None)
Quarter: 2011Q2

REPORT INFORMATION
  Report Type: 
  Country: None (occurrence: None)
  Receive Date: 20110531
  Receipt Date: 20110517
  Transmission Date: 20111010
  Serious: No
  Sender: FDA-Public Use
  Company Number: US-JNJFOC-20110508435

PATIENT
  Sex: Male
  Weight: 72.58 kg

DRUGS (8)
  1. RITALIN [Concomitant]
     Indication: SOMNOLENCE
     Route: 048
     Dates: start: 19980101
  2. DURAGESIC-100 [Suspect]
     Indication: HEADACHE
     Route: 062
     Dates: start: 20090101, end: 20110201
  3. ANAPROX [Concomitant]
     Indication: BREAKTHROUGH PAIN
     Route: 048
     Dates: start: 19980101
  4. NEXIUM [Concomitant]
     Indication: DYSPEPSIA
     Route: 048
     Dates: start: 20050101
  5. ZANAFLEX [Concomitant]
     Indication: MUSCLE RELAXANT THERAPY
     Route: 048
     Dates: start: 20060101
  6. OXYCODONE HCL [Concomitant]
     Indication: BREAKTHROUGH PAIN
     Route: 048
     Dates: start: 19980101
  7. DOXEPIN [Concomitant]
     Indication: SLEEP DISORDER
     Route: 048
     Dates: start: 19980101
  8. FENTANYL-100 [Suspect]
     Indication: HEADACHE
     Route: 062
     Dates: start: 20110201

REACTIONS (6)
  - HYPERHIDROSIS [None]
  - MALAISE [None]
  - INTERCEPTED MEDICATION ERROR [None]
  - WITHDRAWAL SYNDROME [None]
  - INAPPROPRIATE SCHEDULE OF DRUG ADMINISTRATION [None]
  - DRUG EFFECT DECREASED [None]
